FAERS Safety Report 8078256-6 (Version None)
Quarter: 2012Q1

REPORT INFORMATION
  Report Type: 
  Country: None (occurrence: None)
  Receive Date: 20120127
  Receipt Date: 20110216
  Transmission Date: 20120608
  Serious: No
  Sender: FDA-Public Use
  Company Number: US-ABBOTT-08P-163-0450306-00

PATIENT
  Sex: Female
  Weight: 74.91 kg

DRUGS (21)
  1. LAMICTAL [Concomitant]
     Indication: BIPOLAR DISORDER
     Route: 048
  2. ATACAND [Concomitant]
     Indication: HYPERTENSION
     Dosage: DAILY
     Route: 048
  3. CHLORAL HYDRATE [Concomitant]
     Indication: INSOMNIA
     Route: 048
  4. ENABLEX [Concomitant]
     Indication: HYPERTONIC BLADDER
  5. VITAMIN D2 [Concomitant]
     Indication: VITAMIN SUPPLEMENTATION
     Dosage: EVERY OTHER WEEK
  6. DARVOCET [Concomitant]
     Indication: PAIN
     Dosage: AS REQUIRED
     Route: 048
  7. IMODIUM [Concomitant]
     Indication: DIARRHOEA
     Dosage: AS REQUIRED
     Route: 048
  8. HUMIRA [Suspect]
     Indication: ANKYLOSING SPONDYLITIS
     Dates: start: 20060201
  9. ENTOCORT EC [Concomitant]
     Indication: COLITIS
     Route: 048
  10. ATENOLOL [Concomitant]
     Indication: HYPERTENSION
     Dosage: ONE DAILY
     Route: 048
  11. MULTIVITAMIN [Concomitant]
     Indication: MACULAR DEGENERATION
     Dosage: BOTH EYES
  12. PERCOCET [Concomitant]
     Indication: CLUSTER HEADACHE
  13. MIRALAX [Concomitant]
     Indication: CONSTIPATION
     Route: 048
  14. REQUA [Concomitant]
     Indication: INSOMNIA
     Dosage: AT BEDTIME
     Route: 048
  15. TOPAMAX [Concomitant]
     Indication: BIPOLAR DISORDER
     Dosage: DAILY
     Route: 048
  16. WELLBUTRIN SR [Concomitant]
     Indication: BIPOLAR DISORDER
     Dosage: DAILY
     Route: 048
  17. HUMIRA [Suspect]
     Indication: RHEUMATOID ARTHRITIS
     Route: 058
     Dates: start: 20031201, end: 20060201
  18. PREMPRO [Concomitant]
     Indication: HORMONE REPLACEMENT THERAPY
     Dosage: 0.45 MG/1.5 MG DAILY
     Route: 048
  19. KLONOPIN [Concomitant]
     Indication: ANXIETY
     Dosage: DAILY
     Route: 048
  20. KLONOPIN [Concomitant]
     Indication: BIPOLAR DISORDER
  21. ARMODAFINIL [Concomitant]
     Indication: FUNGAL INFECTION
     Dosage: WEEKLY

REACTIONS (8)
  - SKIN ATROPHY [None]
  - RASH ERYTHEMATOUS [None]
  - OPEN WOUND [None]
  - PARAESTHESIA [None]
  - INJECTION SITE HAEMATOMA [None]
  - CONTUSION [None]
  - HYPOAESTHESIA [None]
  - OEDEMA PERIPHERAL [None]
